FAERS Safety Report 9785349 (Version 1)
Quarter: 2013Q4

REPORT INFORMATION
  Report Type: Spontaneous
  Country: US (occurrence: US)
  Receive Date: 20131227
  Receipt Date: 20131227
  Transmission Date: 20140711
  Serious: Yes (Other)
  Sender: FDA-Public Use
  Company Number: US-MYLANLABS-2013S1024661

PATIENT
  Age: 64 Year
  Sex: Male

DRUGS (2)
  1. LEVETIRACETAM TABLETS [Suspect]
     Indication: CONVULSION
     Route: 048
     Dates: start: 20130929, end: 201310
  2. LEVETIRACETAM TABLETS [Suspect]
     Indication: CONVULSION
     Route: 048
     Dates: start: 201310

REACTIONS (2)
  - Drug ineffective [Not Recovered/Not Resolved]
  - Convulsion [Recovered/Resolved]
